FAERS Safety Report 8071060-4 (Version None)
Quarter: 2012Q1

REPORT INFORMATION
  Report Type: 
  Country: None (occurrence: None)
  Receive Date: 20120119
  Receipt Date: 20120111
  Transmission Date: 20120608
  Serious: Yes (Other)
  Sender: FDA-Public Use
  Company Number: A0960968A

PATIENT
  Age: 52 Year
  Sex: Female

DRUGS (1)
  1. SODIUM FLUORIDE + POTASSIUM NITRATE (FORMULATION UNKNOWN)(SODIUM FLUOR [Suspect]
     Indication: TOOTHACHE
     Dosage: DENTAL
     Route: 004

REACTIONS (4)
  - SENSITIVITY OF TEETH [None]
  - TOOTH INJURY [None]
  - DEPENDENCE [None]
  - TOOTHACHE [None]
